FAERS Safety Report 8034233-2 (Version None)
Quarter: 2012Q1

REPORT INFORMATION
  Report Type: 
  Country: None (occurrence: None)
  Receive Date: 20120110
  Receipt Date: 20120103
  Transmission Date: 20120608
  Serious: Yes (Hospitalization)
  Sender: FDA-Public Use
  Company Number: US-BAYER-2011-049147

PATIENT
  Age: 30 Year
  Sex: Female
  Weight: 108.84 kg

DRUGS (2)
  1. MULTI-VITAMINS [Concomitant]
  2. YAZ [Suspect]
     Indication: CONTRACEPTION
     Dosage: UNK
     Dates: start: 20090101, end: 20090801

REACTIONS (8)
  - REFLUX GASTRITIS [None]
  - CHOLECYSTITIS ACUTE [None]
  - CHOLECYSTITIS CHRONIC [None]
  - NAUSEA [None]
  - EMOTIONAL DISTRESS [None]
  - ANXIETY [None]
  - GALLBLADDER CHOLESTEROLOSIS [None]
  - ABDOMINAL PAIN [None]
